FAERS Safety Report 15676610 (Version 1)
Quarter: 2018Q4

REPORT INFORMATION
  Report Type: Spontaneous
  Country: DK (occurrence: DK)
  Receive Date: 20181130
  Receipt Date: 20181130
  Transmission Date: 20190205
  Serious: Yes (Hospitalization)
  Sender: FDA-Public Use
  Company Number: DK-ROCHE-2222469

PATIENT
  Age: 81 Year
  Sex: Female

DRUGS (8)
  1. OXALIPLATIN. [Concomitant]
     Active Substance: OXALIPLATIN
     Indication: COLORECTAL CANCER METASTATIC
     Dosage: DOSE: 100 MG OR 65 MG. STRENGTH: 5 MG/ML.
     Route: 042
     Dates: start: 20180903
  2. AVASTIN [Suspect]
     Active Substance: BEVACIZUMAB
     Indication: COLORECTAL CANCER METASTATIC
     Dosage: FORM STRENGTH: 25 MG/ML.
     Route: 042
     Dates: start: 20180903
  3. BENDROFLUMETHIAZID/KALIUM CHLORID [Concomitant]
     Indication: OEDEMA
     Dosage: FROM STRENGTH: 1.25/573 MG.
     Route: 048
     Dates: start: 20170607
  4. METOPROLOL. [Concomitant]
     Active Substance: METOPROLOL
     Indication: HYPERTENSION
     Dosage: STREGNTH: 50 MG.
     Route: 048
     Dates: start: 20140617
  5. CALCIUM FOLINATE [Concomitant]
     Active Substance: LEUCOVORIN CALCIUM
     Indication: COLORECTAL CANCER METASTATIC
     Dosage: STRENGTH: 10 MG/ML.
     Route: 042
     Dates: start: 20180531
  6. FERRO DURETTER [Concomitant]
     Indication: IRON DEFICIENCY
     Dosage: STRENGTH: 100 MG.
     Route: 048
     Dates: start: 20180427
  7. MAGNESIUM HYDROXIDE. [Concomitant]
     Active Substance: MAGNESIUM HYDROXIDE
     Indication: CONSTIPATION
     Dosage: STRENGTH: 500 MG.
     Route: 048
  8. FLUOROURACIL. [Concomitant]
     Active Substance: FLUOROURACIL
     Indication: COLORECTAL CANCER METASTATIC
     Dosage: STRENGTH: 127 ML
     Route: 042
     Dates: start: 20180531

REACTIONS (4)
  - Pleural effusion [Not Recovered/Not Resolved]
  - Gastrointestinal perforation [Not Recovered/Not Resolved]
  - Gastrointestinal wall thickening [Not Recovered/Not Resolved]
  - Ascites [Not Recovered/Not Resolved]

NARRATIVE: CASE EVENT DATE: 20181112
